FAERS Safety Report 6379685-9 (Version None)
Quarter: 2009Q3

REPORT INFORMATION
  Report Type: 
  Country: None (occurrence: None)
  Receive Date: 20090928
  Receipt Date: 20090921
  Transmission Date: 20100115
  Serious: Yes (Hospitalization, Other)
  Sender: FDA-Public Use
  Company Number: BR-ROCHE-657907

PATIENT
  Sex: Male

DRUGS (11)
  1. DIAZEPAM [Suspect]
     Indication: DRUG USE FOR UNKNOWN INDICATION
     Route: 065
  2. DIAZEPAM [Suspect]
     Dosage: DOSAGE : 3 DIAZEPAM.
     Route: 065
  3. DIAZEPAM [Suspect]
     Dosage: DOSAGE REDUCED
     Route: 065
  4. CLONAZEPAM [Suspect]
     Indication: DRUG USE FOR UNKNOWN INDICATION
     Route: 065
  5. NEOZINE [Suspect]
     Indication: NERVOUS SYSTEM DISORDER
     Dosage: DRUG: NEOZINE 100
     Route: 065
     Dates: start: 20030101
  6. NEOZINE [Suspect]
     Route: 065
  7. MELLARIL [Suspect]
     Indication: SCHIZOPHRENIA
     Dosage: RECEIVED FOR MANY DAYS
     Route: 065
  8. TEGRETOL [Concomitant]
     Dosage: DOSE: 3 TEGRETOL
  9. TEGRETOL [Concomitant]
     Dosage: DOSAGE REDUCED
  10. TRYPTANOL [Concomitant]
     Dosage: DOSE: 3 TRPTANOL
  11. TRYPTANOL [Concomitant]
     Dosage: DOSAGE REDUCED

REACTIONS (5)
  - COMA [None]
  - HALLUCINATION [None]
  - INSOMNIA [None]
  - SUICIDE ATTEMPT [None]
  - TOOTHACHE [None]
